FAERS Safety Report 16947806 (Version 1)
Quarter: 2019Q4

REPORT INFORMATION
  Report Type: Spontaneous
  Country: US (occurrence: US)
  Receive Date: 20191022
  Receipt Date: 20191022
  Transmission Date: 20200122
  Serious: No
  Sender: FDA-Public Use
  Company Number: US-ROCHE-2188835

PATIENT
  Sex: Male

DRUGS (5)
  1. RANITIDINE. [Concomitant]
     Active Substance: RANITIDINE
     Route: 065
  2. HYDROCORTISON [HYDROCORTISONE] [Concomitant]
     Route: 065
  3. OMEPRAZOLE. [Concomitant]
     Active Substance: OMEPRAZOLE
     Route: 065
  4. TRIAMCINOLON [TRIAMCINOLONE] [Concomitant]
     Route: 065
  5. ZELBORAF [Suspect]
     Active Substance: VEMURAFENIB
     Indication: CHEMOTHERAPY
     Dosage: TAKE 2 TAB BY MOUTH TWICE A DAY
     Route: 048

REACTIONS (1)
  - Dry skin [Not Recovered/Not Resolved]
